FAERS Safety Report 12433387 (Version 1)
Quarter: 2016Q2

REPORT INFORMATION
  Report Type: Spontaneous
  Country: IT (occurrence: IT)
  Receive Date: 20160603
  Receipt Date: 20160603
  Transmission Date: 20160815
  Serious: Yes (Hospitalization)
  Sender: FDA-Public Use
  Company Number: IT-FRESENIUS KABI-FK201603276

PATIENT
  Sex: Female

DRUGS (2)
  1. FLUOROURACILE AHCL [Suspect]
     Active Substance: FLUOROURACIL
  2. OXALIPLATIN 5MG/ML CONCENTRATE FOR SOLUTION FOR INFUSION [Suspect]
     Active Substance: OXALIPLATIN
     Indication: GASTRIC CANCER
     Route: 041
     Dates: start: 20160524, end: 20160524

REACTIONS (3)
  - Flushing [Recovering/Resolving]
  - Pruritus [Recovering/Resolving]
  - Head discomfort [Recovering/Resolving]
